FAERS Safety Report 19712041 (Version 3)
Quarter: 2021Q3

REPORT INFORMATION
  Report Type: Report from Study
  Country: GB (occurrence: GB)
  Receive Date: 20210816
  Receipt Date: 20210930
  Transmission Date: 20211014
  Serious: Yes (Hospitalization, Other)
  Sender: FDA-Public Use
  Company Number: GB-PFIZER INC-202100933803

PATIENT

DRUGS (5)
  1. BLINDED BNT162B2 [Suspect]
     Active Substance: TOZINAMERAN
     Indication: COVID-19 IMMUNISATION
     Dosage: DOSE 2, SINGLE
     Route: 050
     Dates: start: 20210628, end: 20210628
  2. BLINDED BNT162B2 [Suspect]
     Active Substance: TOZINAMERAN
     Indication: COVID-19 IMMUNISATION
     Dosage: DOSE 2, SINGLE
     Route: 050
     Dates: start: 20210628, end: 20210628
  3. SYNTOCINON [Suspect]
     Active Substance: OXYTOCIN
     Indication: LABOUR AUGMENTATION
     Dosage: 10 IU, SINGLE
     Route: 064
     Dates: start: 20210718, end: 20210719
  4. DINOPROSTONE. [Suspect]
     Active Substance: DINOPROSTONE
     Indication: LABOUR INDUCTION
     Dosage: MG, 6 HOURLY
     Route: 064
     Dates: start: 20210716, end: 20210717
  5. PLACEBO [Suspect]
     Active Substance: UNSPECIFIED INGREDIENT
     Indication: COVID-19 IMMUNISATION
     Dosage: DOSE 2, SINGLE
     Route: 050
     Dates: start: 20210628, end: 20210628

REACTIONS (2)
  - Maternal exposure during pregnancy [Recovered/Resolved]
  - Foetal hypokinesia [Recovered/Resolved]

NARRATIVE: CASE EVENT DATE: 20210628
